FAERS Safety Report 7902397-4 (Version None)
Quarter: 2011Q4

REPORT INFORMATION
  Report Type: 
  Country: None (occurrence: None)
  Receive Date: 20111108
  Receipt Date: 20111025
  Transmission Date: 20120403
  Serious: Yes (Hospitalization)
  Sender: FDA-Public Use
  Company Number: PHHO2011DE17999

PATIENT
  Sex: Female
  Weight: 52 kg

DRUGS (4)
  1. CYCLOSPORINE [Suspect]
     Indication: IMMUNOSUPPRESSION
     Dosage: 85 MG, QD
     Route: 048
     Dates: start: 20090319
  2. PREDNISOLONE [Suspect]
     Indication: IMMUNOSUPPRESSION
     Dosage: 10 MG, QD
     Route: 048
     Dates: start: 20090318
  3. EVEROLIMUS [Suspect]
     Dosage: 0.125 MG, QD
     Route: 048
  4. EVEROLIMUS [Suspect]
     Indication: LUNG TRANSPLANT
     Dosage: 0.375 MG, QD
     Route: 048
     Dates: start: 20090417

REACTIONS (1)
  - POSTERIOR REVERSIBLE ENCEPHALOPATHY SYNDROME [None]
